FAERS Safety Report 6596880-4 (Version None)
Quarter: 2010Q1

REPORT INFORMATION
  Report Type: 
  Country: None (occurrence: None)
  Receive Date: 20100212
  Receipt Date: 20100202
  Transmission Date: 20100710
  Serious: Yes (Disabling, Other)
  Sender: FDA-Public Use
  Company Number: 2009-200158-NL

PATIENT
  Age: 32 Year
  Sex: Female
  Weight: 95.2554 kg

DRUGS (5)
  1. NUVARING [Suspect]
     Indication: CONTRACEPTION
  2. TYLENOL-500 [Concomitant]
  3. NAPROXEN [Concomitant]
  4. MAXALT [Concomitant]
  5. FIORICET [Concomitant]

REACTIONS (22)
  - APHONIA [None]
  - ARRHYTHMIA [None]
  - ARTHRALGIA [None]
  - BODY TEMPERATURE FLUCTUATION [None]
  - BRAIN NEOPLASM [None]
  - CHEST PAIN [None]
  - CROHN'S DISEASE [None]
  - DYSPNOEA [None]
  - EAR PAIN [None]
  - HEPATIC FUNCTION ABNORMAL [None]
  - HYPERSENSITIVITY [None]
  - INTERVERTEBRAL DISC DEGENERATION [None]
  - INTERVERTEBRAL DISC PROTRUSION [None]
  - JAUNDICE [None]
  - LARYNGITIS [None]
  - MIGRAINE [None]
  - MUSCULOSKELETAL PAIN [None]
  - OEDEMA PERIPHERAL [None]
  - OROPHARYNGEAL PAIN [None]
  - PAIN IN EXTREMITY [None]
  - PALPITATIONS [None]
  - POST-TRAUMATIC PAIN [None]
